FAERS Safety Report 14187672 (Version 1)
Quarter: 2017Q4

REPORT INFORMATION
  Report Type: Spontaneous
  Country: US (occurrence: US)
  Receive Date: 20171114
  Receipt Date: 20171114
  Transmission Date: 20180321
  Serious: No
  Sender: FDA-Public Use
  Company Number: US-BAUSCH-BL-2017-024413

PATIENT
  Sex: Female
  Weight: 68.1 kg

DRUGS (1)
  1. TRETINOIN CREAM 0.1% [Suspect]
     Active Substance: TRETINOIN
     Indication: ACNE
     Dosage: APPLIES TO FACE A DAY
     Route: 061
     Dates: start: 20160825

REACTIONS (1)
  - Drug ineffective [Not Recovered/Not Resolved]
